FAERS Safety Report 11844592 (Version 1)
Quarter: 2015Q4

REPORT INFORMATION
  Report Type: Spontaneous
  Country: US (occurrence: None)
  Receive Date: 20151216
  Receipt Date: 20151216
  Transmission Date: 20160305
  Serious: No
  Sender: FDA-Public Use
  Company Number: None

PATIENT
  Age: 19 Year
  Sex: Male

DRUGS (1)
  1. RIVAROXABAN [Suspect]
     Active Substance: RIVAROXABAN

REACTIONS (3)
  - Haemorrhage intracranial [None]
  - Postoperative thrombosis [None]
  - Thrombophlebitis superficial [None]

NARRATIVE: CASE EVENT DATE: 201503
